FAERS Safety Report 9941303 (Version 2)
Quarter: 2014Q1

REPORT INFORMATION
  Report Type: Report from Study
  Country: US (occurrence: US)
  Receive Date: 20140303
  Receipt Date: 20140303
  Transmission Date: 20141002
  Serious: Yes (Other)
  Sender: FDA-Public Use
  Company Number: US-BRISTOL-MYERS SQUIBB COMPANY-19937879

PATIENT
  Age: 80 Year
  Sex: Female

DRUGS (3)
  1. ORENCIA [Suspect]
     Dosage: INF
     Route: 042
  2. CLARITIN [Concomitant]
  3. BENADRYL [Concomitant]

REACTIONS (1)
  - Hand deformity [Recovered/Resolved]
